FAERS Safety Report 8966028 (Version 1)
Quarter: 2012Q4

REPORT INFORMATION
  Report Type: 
  Country: US (occurrence: US)
  Receive Date: 20121217
  Receipt Date: 20121217
  Transmission Date: 20130627
  Serious: No
  Sender: FDA-Public Use
  Company Number: US-ABBOTT-12P-163-0960759-00

PATIENT
  Age: 39 Year
  Sex: Female
  Weight: 79.45 kg

DRUGS (23)
  1. TRILIPIX [Suspect]
     Indication: BLOOD TRIGLYCERIDES INCREASED
     Dates: start: 20120716
  2. NORVASC [Concomitant]
     Indication: HYPERTENSION
  3. HYDROCODONE [Concomitant]
     Indication: FIBROMYALGIA
     Dosage: 5/5
  4. LEXAPRO [Concomitant]
     Indication: BIPOLAR DISORDER
  5. METFORMIN [Concomitant]
     Indication: DIABETES MELLITUS
  6. NOVOLOG [Concomitant]
     Indication: DIABETES MELLITUS
  7. LEVEMIR [Concomitant]
     Indication: DIABETES MELLITUS
  8. GABAPENTIN [Concomitant]
     Indication: NEUROPATHY PERIPHERAL
  9. ZANAFLEX [Concomitant]
     Indication: MUSCLE RELAXANT THERAPY
  10. KEPRA [Concomitant]
     Indication: EPILEPSY
  11. CLONAZEPAM [Concomitant]
     Indication: EPILEPSY
  12. HYDROCHLOROTHIAZIDE [Concomitant]
     Indication: HYPERTENSION
  13. ALLOPURINOL [Concomitant]
     Indication: RENAL DISORDER
  14. ALLOPURINOL [Concomitant]
     Indication: PROPHYLAXIS
  15. POTASSIUM CITRATE/CITRIC ACID [Concomitant]
     Indication: NEPHROLITHIASIS
     Route: 048
  16. POTASSIUM CITRATE/CITRIC ACID [Concomitant]
     Indication: PROPHYLAXIS
  17. UROCIT-K [Concomitant]
     Indication: NEPHROLITHIASIS
  18. UROCIT-K [Concomitant]
     Indication: PROPHYLAXIS
  19. TRAZODONE [Concomitant]
     Indication: INSOMNIA
  20. NIASPAN [Concomitant]
     Indication: PRODUCT USED FOR UNKNOWN INDICATION
  21. FISH OIL [Concomitant]
     Indication: PRODUCT USED FOR UNKNOWN INDICATION
  22. VISTARIL [Concomitant]
     Indication: INSOMNIA
  23. RITALIN [Concomitant]
     Indication: ATTENTION DEFICIT/HYPERACTIVITY DISORDER

REACTIONS (3)
  - Pharyngitis [Unknown]
  - Insomnia [Not Recovered/Not Resolved]
  - Steatorrhoea [Not Recovered/Not Resolved]
